FAERS Safety Report 7777551-5 (Version None)
Quarter: 2011Q3

REPORT INFORMATION
  Report Type: 
  Country: None (occurrence: None)
  Receive Date: 20110926
  Receipt Date: 20110920
  Transmission Date: 20111222
  Serious: Yes (Other)
  Sender: FDA-Public Use
  Company Number: DE-AMGEN-DEUSP2011048661

PATIENT

DRUGS (2)
  1. ANTINEOPLASTIC AGENTS [Concomitant]
     Indication: NEOPLASM MALIGNANT
  2. NEULASTA [Suspect]
     Indication: CHEMOTHERAPY

REACTIONS (1)
  - DRUG INEFFECTIVE [None]
